FAERS Safety Report 9035541 (Version 1)
Quarter: 2013Q1

REPORT INFORMATION
  Report Type: Report from Study
  Country: US (occurrence: US)
  Receive Date: 20130129
  Receipt Date: 20130129
  Transmission Date: 20140127
  Serious: No
  Sender: FDA-Public Use
  Company Number: US-ABBOTT-12P-163-0908644-00

PATIENT
  Age: 29 Year
  Sex: Female

DRUGS (4)
  1. HUMIRA 40 MG/0.8 ML PEN [Suspect]
     Indication: PSORIASIS
     Dates: start: 20120216, end: 20120216
  2. HUMIRA 40 MG/0.8 ML PEN [Suspect]
     Dates: start: 20120223
  3. BIRTH CONTROL [Concomitant]
     Indication: CONTRACEPTION
  4. TOPICALS [Concomitant]
     Indication: PSORIASIS
     Route: 061

REACTIONS (4)
  - Injection site pain [Recovered/Resolved]
  - Wrong technique in drug usage process [Unknown]
  - Incorrect dose administered [Unknown]
  - Injection site pain [Recovered/Resolved]
